FAERS Safety Report 19824473 (Version 1)
Quarter: 2021Q3

REPORT INFORMATION
  Report Type: Spontaneous
  Country: CN (occurrence: CN)
  Receive Date: 20210913
  Receipt Date: 20210913
  Transmission Date: 20211014
  Serious: Yes (Hospitalization, Other)
  Sender: FDA-Public Use
  Company Number: CN-ASTRAZENECA-2021A711188

PATIENT
  Age: 43 Year
  Sex: Male

DRUGS (4)
  1. LISPRO INSULIN [Concomitant]
     Active Substance: INSULIN LISPRO
     Dosage: 8U
     Route: 058
  2. DAPAGLIFLOZIN. [Suspect]
     Active Substance: DAPAGLIFLOZIN
     Route: 048
  3. GLARGINE INSULIN [Concomitant]
     Active Substance: INSULIN GLARGINE
     Dosage: 22U
     Route: 058
  4. METFORMIN [Concomitant]
     Active Substance: METFORMIN HYDROCHLORIDE
     Dosage: 0.5 G BID
     Route: 048

REACTIONS (1)
  - Diabetic ketoacidosis [Recovered/Resolved]
